FAERS Safety Report 8319929-7 (Version None)
Quarter: 2012Q2

REPORT INFORMATION
  Report Type: 
  Country: None (occurrence: None)
  Receive Date: 20120427
  Receipt Date: 20120413
  Transmission Date: 20120825
  Serious: Yes (Other)
  Sender: FDA-Public Use
  Company Number: GB-WATSON-2012-07227

PATIENT
  Sex: Female

DRUGS (3)
  1. TRABECTEDIN [Suspect]
     Dosage: CYCLE 1 TO 3
     Route: 042
  2. TRABECTEDIN [Suspect]
     Indication: METASTATIC UTERINE CANCER
     Dosage: CYCLE 4
     Route: 042
  3. CLARITHROMYCIN [Suspect]
     Indication: LOWER RESPIRATORY TRACT INFECTION
     Dosage: UNKNOWN
     Route: 065

REACTIONS (7)
  - VOMITING [None]
  - RENAL DISORDER [None]
  - NAUSEA [None]
  - LIVER DISORDER [None]
  - NEUTROPENIA [None]
  - GAMMA-GLUTAMYLTRANSFERASE INCREASED [None]
  - BLOOD CREATINE PHOSPHOKINASE INCREASED [None]
